FAERS Safety Report 16775030 (Version 1)
Quarter: 2019Q3

REPORT INFORMATION
  Report Type: Spontaneous
  Country: GB (occurrence: GB)
  Receive Date: 20190905
  Receipt Date: 20190905
  Transmission Date: 20191005
  Serious: Yes (Other)
  Sender: FDA-Public Use
  Company Number: GB-TEVA-2019-GB-1101307

PATIENT
  Age: 42 Year
  Sex: Male
  Weight: 101 kg

DRUGS (3)
  1. FEXOFENADINE HYDROCHLORIDE. [Suspect]
     Active Substance: FEXOFENADINE HYDROCHLORIDE
     Indication: INFLUENZA LIKE ILLNESS
     Dosage: 1 DOSAGE FORMS DAILY;
     Route: 048
     Dates: start: 20190802, end: 20190802
  2. LORATADINE. [Concomitant]
     Active Substance: LORATADINE
  3. NIGHT NURSE [Concomitant]
     Active Substance: ACETAMINOPHEN\DEXTROMETHORPHAN HYDROBROMIDE\PROMETHAZINE HYDROCHLORIDE

REACTIONS (4)
  - Anxiety [Unknown]
  - Headache [Unknown]
  - Nasal congestion [Unknown]
  - Insomnia [Unknown]

NARRATIVE: CASE EVENT DATE: 20190802
